FAERS Safety Report 4591857-2 (Version None)
Quarter: 2005Q1

REPORT INFORMATION
  Report Type: 
  Country: None (occurrence: None)
  Receive Date: 20050222
  Receipt Date: 20050207
  Transmission Date: 20050727
  Serious: Yes (Hospitalization)
  Sender: FDA-Public Use
  Company Number: VIS10187.2005

PATIENT
  Age: 78 Year
  Sex: Female

DRUGS (9)
  1. VISICOL [Suspect]
     Indication: COLONOSCOPY
     Dosage: 28.5 G ONCE PO
     Route: 048
  2. PHENERGAN [Suspect]
     Indication: NAUSEA
  3. PHENERGAN [Suspect]
     Indication: VOMITING
  4. INDOCIN [Suspect]
     Indication: RHEUMATOID ARTHRITIS
  5. ALDOMET [Concomitant]
  6. DYAZIDE [Concomitant]
  7. COLCHICINE [Concomitant]
  8. ALLOPURINOL [Concomitant]
  9. DETROL [Concomitant]

REACTIONS (13)
  - BLOOD MAGNESIUM DECREASED [None]
  - BLOOD POTASSIUM DECREASED [None]
  - BLOOD SODIUM DECREASED [None]
  - CEREBRAL ISCHAEMIA [None]
  - COLONIC POLYP [None]
  - GLOBAL AMNESIA [None]
  - HAEMORRHAGE [None]
  - NAUSEA [None]
  - POST PROCEDURAL NAUSEA [None]
  - POST PROCEDURAL VOMITING [None]
  - RENAL IMPAIRMENT [None]
  - THROMBOSIS [None]
  - VOMITING [None]
